FAERS Safety Report 12115494 (Version 2)
Quarter: 2016Q2

REPORT INFORMATION
  Report Type: Spontaneous
  Country: FI (occurrence: FI)
  Receive Date: 20160225
  Receipt Date: 20160401
  Transmission Date: 20160815
  Serious: Yes (Other)
  Sender: FDA-Public Use
  Company Number: FI-PFIZER INC-2016105829

PATIENT
  Age: 48 Year
  Sex: Male

DRUGS (4)
  1. LOSATRIX [Concomitant]
     Active Substance: LOSARTAN POTASSIUM
     Indication: HYPERTONIA
     Dosage: 100 MG, 1X/DAY
     Route: 048
     Dates: start: 20140416
  2. LYRICA [Suspect]
     Active Substance: PREGABALIN
     Indication: NEURALGIA
     Dosage: 75 MG, 2X/DAY
     Route: 048
     Dates: start: 20160121, end: 20160128
  3. SIMVASTATIN. [Concomitant]
     Active Substance: SIMVASTATIN
     Indication: HYPERCHOLESTEROLAEMIA
     Dosage: 20 MG, 1X/DAY
     Route: 048
     Dates: start: 20120402
  4. AMLODIPIN [Concomitant]
     Active Substance: AMLODIPINE BESYLATE
     Indication: HYPERTONIA
     Dosage: 5 MG, 1X/DAY
     Route: 048
     Dates: start: 20140519

REACTIONS (1)
  - Anuria [Recovered/Resolved]

NARRATIVE: CASE EVENT DATE: 20160127
